FAERS Safety Report 20423517 (Version 1)
Quarter: 2022Q1

REPORT INFORMATION
  Report Type: Other
  Country: None (occurrence: US)
  Receive Date: 20220203
  Receipt Date: 20220203
  Transmission Date: 20220424
  Serious: Yes (Other)
  Sender: FDA-Public Use
  Company Number: US-RIGHT VALUE DRUG STORES, LLC-2124595

PATIENT
  Age: 62 Year
  Sex: Female
  Weight: 70.909 kg

DRUGS (2)
  1. TESTOSTERONE [Suspect]
     Active Substance: TESTOSTERONE
     Route: 058
  2. ESTRADIOL [Suspect]
     Active Substance: ESTRADIOL
     Route: 058

REACTIONS (1)
  - Breast cancer stage I [None]
